FAERS Safety Report 4526241-0 (Version None)
Quarter: 2004Q4

REPORT INFORMATION
  Report Type: 
  Country: None (occurrence: None)
  Receive Date: 20041214
  Receipt Date: 20041201
  Transmission Date: 20050328
  Serious: Yes (Death, Other)
  Sender: FDA-Public Use
  Company Number: JP-BRISTOL-MYERS SQUIBB COMPANY-12782819

PATIENT
  Age: 41 Year
  Sex: Female

DRUGS (12)
  1. PARAPLATIN [Suspect]
     Indication: MYCOSIS FUNGOIDES
     Route: 040
     Dates: start: 19951227, end: 19960313
  2. ETOPOSIDE [Suspect]
     Indication: MYCOSIS FUNGOIDES
     Route: 042
     Dates: start: 19951227, end: 19960313
  3. CYCLOPHOSPHAMIDE [Suspect]
     Indication: MYCOSIS FUNGOIDES
     Dates: start: 19951227, end: 19960313
  4. DOXORUBICIN HYDROCHLORIDE [Suspect]
     Indication: MYCOSIS FUNGOIDES
     Dates: start: 19951227, end: 19960313
  5. METHOTREXATE [Suspect]
     Indication: MYCOSIS FUNGOIDES
     Dates: start: 19951227, end: 19960313
  6. BLEOMYCIN SULFATE [Suspect]
     Indication: MYCOSIS FUNGOIDES
     Dates: start: 19951227, end: 19960313
  7. VINCRISTINE SULFATE [Suspect]
     Indication: MYCOSIS FUNGOIDES
     Dates: start: 19951227, end: 19960313
  8. CLADRIBINE [Suspect]
     Indication: MYCOSIS FUNGOIDES
     Route: 042
     Dates: start: 19970109, end: 19970511
  9. PREDNISOLONE [Suspect]
     Indication: MYCOSIS FUNGOIDES
     Dates: start: 19951227, end: 19960313
  10. MITOXANTRONE [Suspect]
     Indication: MYCOSIS FUNGOIDES
     Dates: start: 19951227, end: 19960313
  11. IRINOTECAN HCL [Suspect]
     Indication: MYCOSIS FUNGOIDES
     Dates: start: 19961111, end: 19961216
  12. RADIOTHERAPY [Concomitant]
     Indication: MYCOSIS FUNGOIDES

REACTIONS (3)
  - DEATH [None]
  - MYELODYSPLASTIC SYNDROME [None]
  - TREATMENT RELATED SECONDARY MALIGNANCY [None]
